FAERS Safety Report 7828574-9 (Version None)
Quarter: 2011Q4

REPORT INFORMATION
  Report Type: 
  Country: None (occurrence: None)
  Receive Date: 20111020
  Receipt Date: 20111020
  Transmission Date: 20120403
  Serious: Yes (Hospitalization)
  Sender: FDA-Public Use
  Company Number: None

PATIENT
  Age: 64 Year
  Sex: Female
  Weight: 77 kg

DRUGS (4)
  1. SIMVASTATIN [Concomitant]
     Route: 048
  2. LISINOPRIL AND HYDROCHLOROTHIAZIDE [Suspect]
     Indication: HYPERTENSION
     Dosage: UNKNOWN
     Route: 048
  3. ASPIRIN [Concomitant]
     Route: 048
  4. METOPROLOL SUCCINATE EXTENDED RELEASE [Concomitant]
     Route: 048

REACTIONS (3)
  - DIZZINESS [None]
  - BLOOD SODIUM DECREASED [None]
  - HYPOTENSION [None]
